FAERS Safety Report 14202871 (Version 1)
Quarter: 2017Q4

REPORT INFORMATION
  Report Type: Spontaneous
  Country: US (occurrence: None)
  Receive Date: 20171116
  Receipt Date: 20171116
  Transmission Date: 20180321
  Serious: No
  Sender: FDA-Public Use
  Company Number: None

PATIENT
  Age: 50 Year
  Sex: Female
  Weight: 143.34 kg

DRUGS (1)
  1. ENBREL [Suspect]
     Active Substance: ETANERCEPT
     Indication: RHEUMATOID ARTHRITIS
     Route: 058
     Dates: start: 20141101, end: 20170921

REACTIONS (6)
  - Pneumonia [None]
  - Pulmonary oedema [None]
  - Thyroid function test abnormal [None]
  - Bronchitis [None]
  - Hepatic enzyme increased [None]
  - Chest discomfort [None]

NARRATIVE: CASE EVENT DATE: 20170921
